FAERS Safety Report 7511260-2 (Version None)
Quarter: 2011Q2

REPORT INFORMATION
  Report Type: 
  Country: None (occurrence: None)
  Receive Date: 20110531
  Receipt Date: 20110513
  Transmission Date: 20111010
  Serious: Yes (Hospitalization, Other)
  Sender: FDA-Public Use
  Company Number: US-BAYER-2011-045843

PATIENT
  Age: 21 Year
  Sex: Female
  Weight: 79.365 kg

DRUGS (4)
  1. YAZ [Suspect]
     Indication: PRODUCT USED FOR UNKNOWN INDICATION
  2. YAZ [Suspect]
     Indication: MENSTRUATION IRREGULAR
  3. MOTRIN [Concomitant]
  4. ASCORBIC ACID [Concomitant]

REACTIONS (6)
  - ABDOMINAL PAIN [None]
  - NAUSEA [None]
  - HEPATIC ENZYME INCREASED [None]
  - CHILLS [None]
  - BILE DUCT STONE [None]
  - VOMITING [None]
